FAERS Safety Report 6260818-X (Version None)
Quarter: 2009Q3

REPORT INFORMATION
  Report Type: 
  Country: None (occurrence: None)
  Receive Date: 20090707
  Receipt Date: 20090623
  Transmission Date: 20100115
  Serious: No
  Sender: FDA-Public Use
  Company Number: 2009-199407-NL

PATIENT
  Age: 30 Year
  Sex: Female

DRUGS (1)
  1. ETONOGESTREL (BATCH #: 112009/191024) [Suspect]
     Indication: CONTRACEPTION
     Dosage: DF
     Dates: start: 20070828, end: 20090101

REACTIONS (3)
  - DRUG EXPOSURE DURING PREGNANCY [None]
  - PREGNANCY WITH IMPLANT CONTRACEPTIVE [None]
  - PREMATURE SEPARATION OF PLACENTA [None]
